FAERS Safety Report 12580775 (Version 1)
Quarter: 2016Q3

REPORT INFORMATION
  Report Type: Spontaneous
  Country: FR (occurrence: FR)
  Receive Date: 20160721
  Receipt Date: 20160721
  Transmission Date: 20161109
  Serious: Yes (Hospitalization)
  Sender: FDA-Public Use
  Company Number: FR-PFIZER INC-2016349491

PATIENT
  Age: 47 Year
  Sex: Female

DRUGS (4)
  1. VALIUM [Suspect]
     Active Substance: DIAZEPAM
     Dosage: 20 MG (2 MG X 10), UNK
     Route: 048
     Dates: start: 20160620
  2. ATARAX [Suspect]
     Active Substance: HYDROXYZINE\HYDROXYZINE HYDROCHLORIDE
     Dosage: 1350 MG (25 MG X 54), SINGLE
     Route: 048
     Dates: start: 20160620
  3. XANAX [Suspect]
     Active Substance: ALPRAZOLAM
     Dosage: 5 MG (0.25 MG X 20), SINGLE
     Route: 048
     Dates: start: 20160620
  4. IXPRIM [Suspect]
     Active Substance: ACETAMINOPHEN\TRAMADOL HYDROCHLORIDE
     Dosage: 16 DF, SINGLE
     Route: 048
     Dates: start: 20160620

REACTIONS (2)
  - Coma [Recovered/Resolved]
  - Toxicity to various agents [Unknown]

NARRATIVE: CASE EVENT DATE: 201606
